FAERS Safety Report 25362984 (Version 2)
Quarter: 2025Q2

REPORT INFORMATION
  Report Type: Spontaneous
  Country: AU (occurrence: AU)
  Receive Date: 20250527
  Receipt Date: 20250529
  Transmission Date: 20250716
  Serious: Yes (Other)
  Sender: PFIZER
  Company Number: AU-PFIZER INC-PV202500061492

PATIENT

DRUGS (1)
  1. PRISTIQ EXTENDED-RELEASE [Suspect]
     Active Substance: DESVENLAFAXINE SUCCINATE
     Indication: Depression

REACTIONS (5)
  - Suicide attempt [Unknown]
  - Drug dependence [Unknown]
  - Withdrawal syndrome [Unknown]
  - Akathisia [Not Recovered/Not Resolved]
  - Nervous system disorder [Unknown]
